FAERS Safety Report 5845568-3 (Version None)
Quarter: 2008Q3

REPORT INFORMATION
  Report Type: 
  Country: None (occurrence: None)
  Receive Date: 20080814
  Receipt Date: 20080731
  Transmission Date: 20090109
  Serious: Yes (Hospitalization)
  Sender: FDA-Public Use
  Company Number: PHHO2008US09506

PATIENT
  Sex: Male
  Weight: 145 kg

DRUGS (9)
  1. HYDROCHLOROTHIAZIDE [Suspect]
  2. SORAFENIB [Suspect]
     Indication: RENAL CELL CARCINOMA
  3. SUNITINIB MALATE [Suspect]
     Indication: RENAL CELL CARCINOMA
  4. NORVASC [Suspect]
     Dosage: UNK
  5. LISINOPRIL [Suspect]
  6. LEXAPRO [Concomitant]
  7. PRILOSEC [Concomitant]
  8. XANAX [Concomitant]
  9. ZOFRAN [Concomitant]

REACTIONS (9)
  - BLADDER CATHETERISATION [None]
  - BLADDER DISCOMFORT [None]
  - DEHYDRATION [None]
  - DYSGEUSIA [None]
  - HYPOPHAGIA [None]
  - OLIGURIA [None]
  - RENAL FAILURE [None]
  - RENAL INJURY [None]
  - URINE OUTPUT DECREASED [None]
